FAERS Safety Report 24176103 (Version 1)
Quarter: 2024Q3

REPORT INFORMATION
  Report Type: Report from Study
  Country: US (occurrence: US)
  Receive Date: 20240806
  Receipt Date: 20240806
  Transmission Date: 20241016
  Serious: Yes (Death, Hospitalization, Other)
  Sender: TAKEDA
  Company Number: US-TAKEDA-2024TUS014149

PATIENT
  Age: 68 Year
  Sex: Male

DRUGS (2)
  1. FRUQUINTINIB [Suspect]
     Active Substance: FRUQUINTINIB
     Indication: Appendix cancer
     Dosage: 5 MILLIGRAM
     Route: 048
     Dates: start: 20240202
  2. FRUQUINTINIB [Suspect]
     Active Substance: FRUQUINTINIB
     Dosage: 5 MILLIGRAM
     Route: 048

REACTIONS (11)
  - Death [Fatal]
  - Large intestine perforation [Unknown]
  - Hypophagia [Unknown]
  - Muscle twitching [Unknown]
  - Diarrhoea [Unknown]
  - Inflammation [Unknown]
  - Tooth disorder [Unknown]
  - Fatigue [Unknown]
  - Pain in extremity [Unknown]
  - Stomatitis [Unknown]
  - Off label use [Unknown]

NARRATIVE: CASE EVENT DATE: 20240729
